FAERS Safety Report 24754815 (Version 1)
Quarter: 2024Q4

REPORT INFORMATION
  Report Type: Spontaneous
  Country: US (occurrence: None)
  Receive Date: 20241219
  Receipt Date: 20241219
  Transmission Date: 20250115
  Serious: Yes (Other)
  Sender: Public
  Company Number: None

PATIENT
  Age: 15 Year
  Sex: Male
  Weight: 55.1 kg

DRUGS (2)
  1. CABENUVA [Suspect]
     Active Substance: CABOTEGRAVIR\RILPIVIRINE
     Indication: HIV infection
     Dosage: OTHER FREQUENCY : EVERY 2 MONTHS;?
     Route: 030
     Dates: start: 20241001
  2. CABOTEGRAVIR\RILPIVIRINE [Suspect]
     Active Substance: CABOTEGRAVIR\RILPIVIRINE
     Indication: HIV infection
     Dosage: OTHER FREQUENCY : EVERY 2 MONTHS;?
     Route: 030
     Dates: start: 20241001

REACTIONS (6)
  - Post procedural complication [None]
  - Hypoaesthesia oral [None]
  - Cough [None]
  - Oxygen saturation decreased [None]
  - Liquid product physical issue [None]
  - Product use complaint [None]

NARRATIVE: CASE EVENT DATE: 20241217
